FAERS Safety Report 8285164-4 (Version None)
Quarter: 2012Q2

REPORT INFORMATION
  Report Type: 
  Country: None (occurrence: None)
  Receive Date: 20120413
  Receipt Date: 20110620
  Transmission Date: 20120825
  Serious: Yes (Hospitalization)
  Sender: FDA-Public Use
  Company Number: US-ASTRAZENECA-2011SE37322

PATIENT
  Age: 80 Year
  Sex: Female
  Weight: 64.9 kg

DRUGS (8)
  1. PRILOSEC OTC [Suspect]
     Route: 048
  2. ASPIRIN [Concomitant]
  3. AMLODIPINE [Concomitant]
  4. NEXIUM [Suspect]
     Indication: GASTROOESOPHAGEAL REFLUX DISEASE
     Route: 048
  5. NEXIUM [Suspect]
     Indication: EROSIVE OESOPHAGITIS
     Route: 048
  6. LIPITOR [Concomitant]
  7. METOPROLOL TARTRATE [Concomitant]
  8. METFORMIN HCL [Concomitant]

REACTIONS (5)
  - PHARYNGEAL OEDEMA [None]
  - BLOOD MAGNESIUM DECREASED [None]
  - MALAISE [None]
  - MUSCLE SPASMS [None]
  - DRUG INEFFECTIVE [None]
